FAERS Safety Report 5497885-7 (Version None)
Quarter: 2007Q4

REPORT INFORMATION
  Report Type: 
  Country: None (occurrence: None)
  Receive Date: 20071018
  Receipt Date: 20060920
  Transmission Date: 20080405
  Serious: Yes (Other)
  Sender: FDA-Public Use
  Company Number: 2006113909

PATIENT
  Age: 97 Year
  Sex: Female
  Weight: 74.8435 kg

DRUGS (11)
  1. NEURONTIN [Suspect]
     Indication: POST HERPETIC NEURALGIA
     Dates: start: 20041001
  2. LYRICA [Suspect]
     Indication: POST HERPETIC NEURALGIA
     Dosage: 100 MG (50 MG, 2 IN 1 D)
     Dates: start: 20051001
  3. TYLENOL W/ CODEINE NO. 3 [Suspect]
     Indication: MULTIPLE FRACTURES
  4. TYLENOL W/ CODEINE NO. 3 [Suspect]
     Indication: WRIST FRACTURE
  5. ULTRAM [Suspect]
     Indication: POST HERPETIC NEURALGIA
     Dates: start: 20060101, end: 20060101
  6. LEXAPRO [Concomitant]
  7. VALSARTAN [Concomitant]
  8. SEROQUEL [Concomitant]
  9. DETROL [Concomitant]
  10. LIPITOR [Concomitant]
  11. ARICEPT [Concomitant]

REACTIONS (3)
  - DISORIENTATION [None]
  - DRUG INEFFECTIVE [None]
  - SOMNOLENCE [None]
